FAERS Safety Report 18047889 (Version 1)
Quarter: 2020Q3

REPORT INFORMATION
  Report Type: Spontaneous
  Country: US (occurrence: US)
  Receive Date: 20200717
  Receipt Date: 20200717
  Transmission Date: 20201103
  Serious: Yes (Other)
  Sender: FDA-Public Use
  Company Number: None

PATIENT
  Age: 66 Year
  Sex: Female
  Weight: 94.5 kg

DRUGS (1)
  1. HAND SANITIZER BY ADVANCED LOCAL HEALTH [Suspect]
     Active Substance: ALCOHOL
     Indication: COVID-19 PROPHYLAXIS
     Route: 061
     Dates: start: 20200624, end: 20200702

REACTIONS (6)
  - Manufacturing issue [None]
  - Abdominal pain upper [None]
  - Diarrhoea [None]
  - Vision blurred [None]
  - Headache [None]
  - Blood test [None]

NARRATIVE: CASE EVENT DATE: 20200624
